FAERS Safety Report 6675481-3 (Version None)
Quarter: 2010Q2

REPORT INFORMATION
  Report Type: 
  Country: None (occurrence: None)
  Receive Date: 20100409
  Receipt Date: 20100330
  Transmission Date: 20101027
  Serious: Yes (Other)
  Sender: FDA-Public Use
  Company Number: B0630919A

PATIENT
  Sex: Female

DRUGS (1)
  1. RANITIDINE HCL [Suspect]
     Indication: DYSPEPSIA
     Dosage: 600MG PER DAY
     Route: 048
     Dates: start: 20091104, end: 20091120

REACTIONS (6)
  - CARDIOVASCULAR DISORDER [None]
  - CONFUSIONAL STATE [None]
  - CONSTIPATION [None]
  - HEADACHE [None]
  - NAUSEA [None]
  - PYREXIA [None]
